FAERS Safety Report 6754156-6 (Version None)
Quarter: 2010Q2

REPORT INFORMATION
  Report Type: 
  Country: None (occurrence: None)
  Receive Date: 20100603
  Receipt Date: 20100519
  Transmission Date: 20101027
  Serious: Yes (Hospitalization)
  Sender: FDA-Public Use
  Company Number: PHHY2010US31289

PATIENT
  Sex: Male
  Weight: 39 kg

DRUGS (7)
  1. EXJADE [Suspect]
     Indication: SICKLE CELL ANAEMIA
     Dosage: 1000 MG, QD
     Route: 048
  2. EXJADE [Suspect]
     Dosage: 500 MG, QD
     Route: 048
  3. ADVAIR DISKUS 100/50 [Concomitant]
     Dosage: 45 MCG: 21MCG, 2 PUFFS BID
     Route: 045
  4. FOLIC ACID [Concomitant]
     Dosage: 1 MG, DAILY
     Route: 048
  5. HYDROXYUREA [Concomitant]
     Dosage: UNK
     Route: 048
  6. OXYGEN [Concomitant]
  7. ALBUTEROL SULFATE [Concomitant]
     Dosage: 90 MCG, 2 PUFFS/ 4-6 HOURS
     Route: 045

REACTIONS (3)
  - BACK PAIN [None]
  - CHEST PAIN [None]
  - MALAISE [None]
